FAERS Safety Report 10015923 (Version 4)
Quarter: 2014Q2

REPORT INFORMATION
  Report Type: Spontaneous
  Country: US (occurrence: US)
  Receive Date: 20140317
  Receipt Date: 20140409
  Transmission Date: 20141212
  Serious: Yes (Hospitalization)
  Sender: FDA-Public Use
  Company Number: US-JNJFOC-20140306419

PATIENT
  Age: 80 Year
  Sex: Female
  Weight: 63.6 kg

DRUGS (17)
  1. XARELTO [Suspect]
     Indication: HIP ARTHROPLASTY
     Route: 048
     Dates: start: 20130726, end: 20130815
  2. XARELTO [Suspect]
     Indication: THROMBOSIS PROPHYLAXIS
     Route: 048
     Dates: start: 20130726, end: 20130815
  3. ASPIRIN [Suspect]
     Indication: PRODUCT USED FOR UNKNOWN INDICATION
     Route: 065
     Dates: end: 20130815
  4. LANTUS [Concomitant]
     Route: 065
  5. DONEPEZIL [Concomitant]
     Route: 065
  6. MEMANTINE [Concomitant]
     Route: 065
  7. NORCO [Concomitant]
     Dosage: 5/325 MG
     Route: 065
  8. TRAMADOL [Concomitant]
     Route: 065
  9. LYRICA [Concomitant]
     Route: 065
  10. MIRTAZAPINE [Concomitant]
     Route: 065
  11. MELATONIN [Concomitant]
     Route: 065
  12. OMEPRAZOLE [Concomitant]
     Route: 065
  13. ZETIA [Concomitant]
     Route: 065
  14. DIOVAN HCT [Concomitant]
     Dosage: 160/12.5 MG
     Route: 065
  15. LEVOTHYROXINE [Concomitant]
     Route: 065
  16. ASCORBIC ACID [Concomitant]
     Route: 065
  17. VITAMINE E [Concomitant]
     Route: 065

REACTIONS (6)
  - Prothrombin time prolonged [Unknown]
  - Cystitis haemorrhagic [Recovered/Resolved]
  - Anaemia [Recovering/Resolving]
  - Urinary tract infection [Unknown]
  - Blood glucose increased [Unknown]
  - Bladder disorder [Unknown]
